FAERS Safety Report 21934603 (Version 2)
Quarter: 2023Q1

REPORT INFORMATION
  Report Type: Report from Study
  Country: CA (occurrence: CA)
  Receive Date: 20230201
  Receipt Date: 20230303
  Transmission Date: 20230418
  Serious: Yes (Hospitalization, Other)
  Sender: FDA-Public Use
  Company Number: CA-JNJFOC-20230110137

PATIENT
  Age: 76 Year
  Sex: Female
  Weight: 64 kg

DRUGS (2)
  1. STELARA [Suspect]
     Active Substance: USTEKINUMAB
     Indication: Crohn^s disease
     Dosage: NEXT APPOINTMENT ON 10-JAN-2023
     Route: 058
     Dates: start: 20190422
  2. STELARA [Suspect]
     Active Substance: USTEKINUMAB
     Indication: Colitis ulcerative

REACTIONS (4)
  - Rectovaginal septum abscess [Unknown]
  - Urinary tract infection [Not Recovered/Not Resolved]
  - Proctectomy [Recovering/Resolving]
  - Anal cyst [Unknown]

NARRATIVE: CASE EVENT DATE: 20230115
